FAERS Safety Report 19932172 (Version 1)
Quarter: 2021Q4

REPORT INFORMATION
  Report Type: Spontaneous
  Country: US (occurrence: US)
  Receive Date: 20211006
  Receipt Date: 20211006
  Transmission Date: 20220303
  Serious: Yes (Hospitalization)
  Sender: FDA-Public Use
  Company Number: None

PATIENT
  Age: 73 Year
  Sex: Female

DRUGS (1)
  1. ERLOTINIB [Suspect]
     Active Substance: ERLOTINIB
     Route: 048
     Dates: start: 201310

REACTIONS (4)
  - Rash [None]
  - Jaundice [None]
  - Chemical poisoning [None]
  - Labelled drug-drug interaction issue [None]

NARRATIVE: CASE EVENT DATE: 20211001
